FAERS Safety Report 13894087 (Version 2)
Quarter: 2017Q4

REPORT INFORMATION
  Report Type: Spontaneous
  Country: NL (occurrence: NL)
  Receive Date: 20170822
  Receipt Date: 20171219
  Transmission Date: 20180320
  Serious: Yes (Death, Life-Threatening, Hospitalization, Other)
  Sender: FDA-Public Use
  Company Number: NL-BAUSCH-BL-2017-025097

PATIENT
  Age: 64 Year
  Sex: Male

DRUGS (3)
  1. AMOXICILLIN W/CLAVULANIC ACID [Concomitant]
     Active Substance: AMOXICILLIN\CLAVULANIC ACID
     Indication: ENTEROCOCCAL INFECTION
  2. TOBRAMYCIN. [Concomitant]
     Active Substance: TOBRAMYCIN
     Indication: ENTEROCOCCAL INFECTION
  3. ENALAPRIL 20 MG, HYDROCHLOROTHIAZIDE 12.5 MG [Suspect]
     Active Substance: ENALAPRIL MALEATE\HYDROCHLOROTHIAZIDE
     Indication: PRODUCT USED FOR UNKNOWN INDICATION
     Route: 065

REACTIONS (6)
  - Osmotic demyelination syndrome [Fatal]
  - Hypovolaemia [Unknown]
  - Hyponatraemia [Unknown]
  - Hepatic enzyme increased [Unknown]
  - Acute kidney injury [Unknown]
  - Hypokalaemia [Unknown]
